FAERS Safety Report 9366825 (Version 1)
Quarter: 2013Q2

REPORT INFORMATION
  Report Type: Spontaneous
  Country: AU (occurrence: None)
  Receive Date: 20130620
  Receipt Date: 20130620
  Transmission Date: 20140414
  Serious: Yes (Hospitalization)
  Sender: FDA-Public Use
  Company Number: SYM-2013-04653

PATIENT
  Age: 4 Year
  Sex: Female

DRUGS (1)
  1. VENLAFAXINE [Suspect]
     Indication: PRODUCT USED FOR UNKNOWN INDICATION

REACTIONS (12)
  - Dystonia [None]
  - Urinary incontinence [None]
  - Pyrexia [None]
  - Drooling [None]
  - Mutism [None]
  - Musculoskeletal stiffness [None]
  - Hypomania [None]
  - Tachycardia [None]
  - Akinesia [None]
  - Neuroleptic malignant syndrome [None]
  - Serotonin syndrome [None]
  - Extrapyramidal disorder [None]
